FAERS Safety Report 18553245 (Version 1)
Quarter: 2020Q4

REPORT INFORMATION
  Report Type: Spontaneous
  Country: US (occurrence: US)
  Receive Date: 20201127
  Receipt Date: 20201127
  Transmission Date: 20210114
  Serious: No
  Sender: FDA-Public Use
  Company Number: US-TEVA-2020-US-1852376

PATIENT
  Age: 65 Year
  Sex: Female

DRUGS (13)
  1. LEVEMIR FLEXTOUCH SUBCUTANEOUS SOLUTION EN-INJECTOR 100 UNIT/ML [Concomitant]
     Route: 058
  2. PRAZOSIN HCL ORAL CAPSULE 2 MG [Concomitant]
     Route: 048
  3. IRON UP ORAL LIQUID 15 MG/0.5ML [Concomitant]
     Route: 048
  4. GABAPENTIN ORAL CAPSULE 300 MG [Concomitant]
     Route: 048
  5. ALBUTEROL SULFATE INHALATION NEBULIZATION SOLUTION (2.5 MG/3ML) 0.083% [Concomitant]
  6. AUSTEDO [Suspect]
     Active Substance: DEUTETRABENAZINE
     Indication: TARDIVE DYSKINESIA
     Dosage: 12 MILLIGRAM DAILY;
     Dates: start: 20201106, end: 20201115
  7. PROMETAZINE HCL ORAL TABLET 25 MG [Concomitant]
     Route: 048
  8. TRAZODONE HCL ORAL TABLET 25 MG [Concomitant]
     Route: 048
  9. BUPROPION HCL ER (XL) ORAL TABLET EXTENDED RELEASE 24 HOUR 150 MG [Concomitant]
     Route: 048
  10. OMEPRAZOLE ORAL CAPSULE DELAYED RELEASE 20 MG [Concomitant]
     Route: 048
  11. PROAIR HFA INHALATION AEROSOL SOLUTIO 106 (90 BASE) MCG/ACT [Concomitant]
  12. AMLODIPINE BESYLATE ORAL TABLET 10 MG [Concomitant]
     Route: 048
  13. NOVOLOG FLEXPEN SUBCUTANEOUS SOLUTION PEN-INJECTOR 100 UNIT/ML [Concomitant]
     Route: 058

REACTIONS (3)
  - Nausea [Recovering/Resolving]
  - Mood altered [Not Recovered/Not Resolved]
  - Feeling jittery [Recovering/Resolving]
